FAERS Safety Report 4914840-3 (Version None)
Quarter: 2006Q1

REPORT INFORMATION
  Report Type: 
  Country: None (occurrence: None)
  Receive Date: 20060113
  Receipt Date: 20051025
  Transmission Date: 20060701
  Serious: No
  Sender: FDA-Public Use
  Company Number: 2005SP003671

PATIENT
  Age: 34 Year
  Sex: Female
  Weight: 54.4316 kg

DRUGS (2)
  1. LUNESTA [Suspect]
     Dosage: 2 MG HS ORAL ; 2 MG TX ORAL
     Route: 048
     Dates: start: 20051024, end: 20051024
  2. LUNESTA [Suspect]
     Dosage: 2 MG HS ORAL ; 2 MG TX ORAL
     Route: 048
     Dates: start: 20051024

REACTIONS (3)
  - DRUG INEFFECTIVE [None]
  - INSOMNIA [None]
  - PALPITATIONS [None]
